FAERS Safety Report 5744139-7 (Version None)
Quarter: 2008Q2

REPORT INFORMATION
  Report Type: 
  Country: None (occurrence: None)
  Receive Date: 20080520
  Receipt Date: 20080515
  Transmission Date: 20081010
  Serious: Yes (Other)
  Sender: FDA-Public Use
  Company Number: B0521008A

PATIENT
  Sex: Female
  Weight: 60 kg

DRUGS (1)
  1. SEROXAT [Suspect]
     Indication: DEPRESSION
     Route: 048
     Dates: start: 20070101, end: 20080401

REACTIONS (2)
  - ABORTION MISSED [None]
  - DRUG EXPOSURE DURING PREGNANCY [None]
